FAERS Safety Report 20178366 (Version 2)
Quarter: 2022Q1

REPORT INFORMATION
  Report Type: Spontaneous
  Country: DE (occurrence: DE)
  Receive Date: 20211213
  Receipt Date: 20220106
  Transmission Date: 20220424
  Serious: Yes (Hospitalization, Other)
  Sender: FDA-Public Use
  Company Number: DE-AMK-254717

PATIENT
  Age: 83 Year
  Sex: Female
  Weight: 69 kg

DRUGS (22)
  1. CITALOPRAM [Suspect]
     Active Substance: CITALOPRAM HYDROBROMIDE
     Indication: Depression
     Dosage: 20 MILLIGRAM, DAILY, 1-0-0
     Route: 048
  2. CITALOPRAM [Suspect]
     Active Substance: CITALOPRAM HYDROBROMIDE
     Dosage: 30 MILLIGRAM, DAILY 1 1/2
     Route: 048
     Dates: start: 20211119
  3. FENTANYL [Suspect]
     Active Substance: FENTANYL
     Indication: Scoliosis
     Dosage: 1 DOSAGE FORM/3 DAYS
     Route: 062
     Dates: end: 202111
  4. MIRTAZAPINE [Suspect]
     Active Substance: MIRTAZAPINE
     Indication: Depression
     Dosage: 30 MILLIGRAM, DAILY, 0-0-0-2 INCREASED TO 45MG AT NIGHT FROM NOVEMBER 2021
     Route: 048
  5. MIRTAZAPINE [Suspect]
     Active Substance: MIRTAZAPINE
     Dosage: FROM NOVEMBER 2021 INCREASED TO 45MG AT NIGHT INCREASED FROM NOVEMBER 2021 TO 45MG AT NIGHT
     Route: 048
     Dates: start: 20211119
  6. QUETIAPINE [Suspect]
     Active Substance: QUETIAPINE
     Indication: Depression
     Dosage: 100 MILLIGRAM, DAILY, 0-0-0-1
     Route: 048
     Dates: end: 20211119
  7. Furosemid 20 mg [Concomitant]
     Indication: Product used for unknown indication
     Dosage: 10 MILLIGRAM, DAILY, 1 / 2-0-0 (IF YOU HAVE EDEMA IN YOUR LEGS, TAKE AN ADDITIONAL 1/2 TABLET)
     Route: 065
  8. Alendronsaure Aurobindo 70 mg [Concomitant]
     Indication: Product used for unknown indication
     Dosage: 70 MILLIGRAM, WEEKLY, 1X A WEEK ON SATURDAYS
     Route: 065
  9. CLOPIDOGREL [Concomitant]
     Active Substance: CLOPIDOGREL BISULFATE
     Indication: Coronary artery disease
     Dosage: 37.5 MILLIGRAM, DAILY, 0.5-0-0
     Route: 048
  10. PANTOPRAZOLE SODIUM [Concomitant]
     Active Substance: PANTOPRAZOLE SODIUM
     Indication: Product used for unknown indication
     Dosage: 40 MILLIGRAM, DAILY, 2-0-0
     Route: 065
  11. PANTOPRAZOLE SODIUM [Concomitant]
     Active Substance: PANTOPRAZOLE SODIUM
     Dosage: 1 TABLET
     Route: 065
     Dates: start: 202112
  12. ASPIRIN [Concomitant]
     Active Substance: ASPIRIN
     Indication: Product used for unknown indication
     Dosage: 100 MILLIGRAM, DAILY, 0-1-0
     Route: 065
  13. Brimonidin 2mg/ml Augentropfen [Concomitant]
     Indication: Product used for unknown indication
     Dosage: 1 GTT DROPS, BID, 1-0-1
     Route: 065
  14. NITROGLYCERIN [Concomitant]
     Active Substance: NITROGLYCERIN
     Indication: Chest discomfort
     Dosage: UNK, AS NECESSARY
     Route: 065
  15. Amlodipin/Valsartan 5 mg/160mg [Concomitant]
     Indication: Product used for unknown indication
     Dosage: 1 DOSAGE FORM, BID, 1-0-1
     Route: 065
  16. Vigantol 1000IE Vit.D3 [Concomitant]
     Indication: Product used for unknown indication
     Dosage: 1 DOSAGE FORM, DAILY, 0-0-1
     Route: 065
  17. NEBIVOLOL [Concomitant]
     Active Substance: NEBIVOLOL
     Indication: Product used for unknown indication
     Dosage: 1.25 MILLIGRAM, DAILY, 1/4-0-0
     Route: 065
  18. Duotrav 40 Mikro/ml + 5 mg/ml Augentropfen [Concomitant]
     Indication: Product used for unknown indication
     Dosage: 1 GTT DROPS, DAILY, 0-0-1
     Route: 065
  19. ATORVASTATIN [Concomitant]
     Active Substance: ATORVASTATIN
     Indication: Product used for unknown indication
     Dosage: 40 MILLIGRAM, DAILY, 0-0-1
     Route: 065
  20. Brinzo Vision 10mg/ml Augentropfen [Concomitant]
     Indication: Product used for unknown indication
     Dosage: 1 GTT DROPS, BID, 1-0-1
     Route: 065
  21. Jodid 200 Mikrogramm [Concomitant]
     Indication: Product used for unknown indication
     Dosage: 200 MICROGRAM, DAILY, 1-0-0
     Route: 065
  22. Kalinor 600 mg [Concomitant]
     Indication: Product used for unknown indication
     Dosage: 600 MILLIGRAM, BID, 1-0-1
     Route: 065

REACTIONS (16)
  - Blood pressure fluctuation [Recovering/Resolving]
  - Cholestasis [Recovering/Resolving]
  - Constipation [Recovering/Resolving]
  - Chills [Recovering/Resolving]
  - Decreased appetite [Recovering/Resolving]
  - Gait disturbance [Recovering/Resolving]
  - Cholestasis [Recovering/Resolving]
  - Dry mouth [Recovering/Resolving]
  - Weight decreased [Recovering/Resolving]
  - Dry eye [Recovering/Resolving]
  - Feeling cold [Recovering/Resolving]
  - Hepatocellular injury [Recovering/Resolving]
  - Urinary tract infection [Recovering/Resolving]
  - Hypotonia [Recovering/Resolving]
  - General physical health deterioration [Recovering/Resolving]
  - Night sweats [Not Recovered/Not Resolved]

NARRATIVE: CASE EVENT DATE: 20210101
